FAERS Safety Report 10156182 (Version 1)
Quarter: 2014Q2

REPORT INFORMATION
  Report Type: Report from Study
  Country: CA (occurrence: CA)
  Receive Date: 20140506
  Receipt Date: 20140506
  Transmission Date: 20141212
  Serious: Yes (Other)
  Sender: FDA-Public Use
  Company Number: PHHY2014CA054818

PATIENT
  Age: 54 Year
  Sex: Female

DRUGS (5)
  1. ACLASTA [Suspect]
     Indication: OSTEOPOROSIS
     Dosage: UNK
     Route: 042
     Dates: start: 20090511
  2. ACLASTA [Suspect]
     Dosage: UNK
     Route: 042
     Dates: start: 20100510
  3. ACLASTA [Suspect]
     Dosage: UNK
     Route: 042
     Dates: start: 20110519
  4. ACLASTA [Suspect]
     Dosage: UNK
     Route: 042
     Dates: start: 20120514
  5. ACLASTA [Suspect]
     Dosage: UNK
     Route: 042
     Dates: start: 20130515

REACTIONS (1)
  - Wrist fracture [Unknown]
